FAERS Safety Report 5470887-2 (Version None)
Quarter: 2007Q3

REPORT INFORMATION
  Report Type: 
  Country: None (occurrence: None)
  Receive Date: 20070925
  Receipt Date: 20070905
  Transmission Date: 20080115
  Serious: Yes (Other)
  Sender: FDA-Public Use
  Company Number: 6038141

PATIENT
  Sex: Female

DRUGS (2)
  1. CIPROFLOXACIN [Suspect]
     Indication: DRUG USE FOR UNKNOWN INDICATION
     Dosage: 250 MG; 1000 MG 1000 MG (500 MG, 2 IN 1 D);
  2. IBUPROFEN [Concomitant]

REACTIONS (3)
  - HEADACHE [None]
  - MALAISE [None]
  - THINKING ABNORMAL [None]
